FAERS Safety Report 7983088-0 (Version None)
Quarter: 2011Q4

REPORT INFORMATION
  Report Type: 
  Country: None (occurrence: None)
  Receive Date: 20111215
  Receipt Date: 20111213
  Transmission Date: 20120403
  Serious: Yes (Hospitalization)
  Sender: FDA-Public Use
  Company Number: ES-B.I. PHARMACEUTICALS,INC./RIDGEFIELD-2011-ES-00243ES

PATIENT
  Age: 76 Year
  Sex: Female

DRUGS (3)
  1. DEXKETOPROFENO TROMETAMOL [Concomitant]
  2. ACETAMINOPHEN [Concomitant]
  3. PRADAXA [Suspect]
     Indication: KNEE ARTHROPLASTY
     Dosage: 150 MG
     Dates: start: 20110309, end: 20110317

REACTIONS (3)
  - ASTHENIA [None]
  - PALLOR [None]
  - DYSPNOEA EXERTIONAL [None]
